FAERS Safety Report 17550428 (Version 1)
Quarter: 2020Q1

REPORT INFORMATION
  Report Type: Report from Study
  Country: None (occurrence: US)
  Receive Date: 20200317
  Receipt Date: 20200317
  Transmission Date: 20200409
  Serious: Yes (Other)
  Sender: FDA-Public Use
  Company Number: US-ABBVIE-19K-163-3160819-00

PATIENT
  Sex: Female

DRUGS (4)
  1. IMBRUVICA [Suspect]
     Active Substance: IBRUTINIB
     Indication: CHRONIC LYMPHOCYTIC LEUKAEMIA
     Dosage: 420 MG, QD
     Route: 048
     Dates: start: 20190913
  2. IMBRUVICA [Suspect]
     Active Substance: IBRUTINIB
     Route: 048
     Dates: start: 2019
  3. IMBRUVICA [Suspect]
     Active Substance: IBRUTINIB
     Route: 048
     Dates: start: 20190823
  4. IMBRUVICA [Suspect]
     Active Substance: IBRUTINIB
     Dosage: 420 MG, QD
     Route: 048
     Dates: start: 20190915

REACTIONS (27)
  - Platelet count abnormal [Unknown]
  - Nasopharyngitis [Unknown]
  - Weight decreased [Not Recovered/Not Resolved]
  - Erythema [Not Recovered/Not Resolved]
  - Arthralgia [Not Recovered/Not Resolved]
  - Inflammation [Not Recovered/Not Resolved]
  - Pain [Recovering/Resolving]
  - Tooth disorder [Not Recovered/Not Resolved]
  - Dermatitis contact [Unknown]
  - Muscle spasms [Unknown]
  - Mean cell volume increased [Unknown]
  - Energy increased [Unknown]
  - Limb discomfort [Recovering/Resolving]
  - White blood cell count increased [Recovering/Resolving]
  - Blood count abnormal [Unknown]
  - Diarrhoea [Recovered/Resolved]
  - White blood cell count increased [Not Recovered/Not Resolved]
  - Fatigue [Unknown]
  - Gout [Not Recovered/Not Resolved]
  - Conjunctival haemorrhage [Recovered/Resolved]
  - Atrial fibrillation [Unknown]
  - Platelet count increased [Unknown]
  - Blood urea increased [Unknown]
  - Miliaria [Unknown]
  - Anaemia [Unknown]
  - Fatigue [Not Recovered/Not Resolved]
  - Anxiety [Unknown]

NARRATIVE: CASE EVENT DATE: 2019
